FAERS Safety Report 9300124 (Version 1)
Quarter: 2013Q1

REPORT INFORMATION
  Report Type: Spontaneous
  Country: US (occurrence: None)
  Receive Date: 20121231
  Receipt Date: 20121231
  Transmission Date: 20140127
  Serious: Yes (Other)
  Sender: FDA-Public Use
  Company Number: RB-44432-2012

PATIENT
  Age: 30 Year
  Sex: Female

DRUGS (3)
  1. SUBOXONE [Suspect]
     Indication: PRODUCT USED FOR UNKNOWN INDICATION
     Dosage: DOSING DETAILS NOT PROVIDED UNKNOWN
  2. SUBOXONE [Suspect]
     Indication: PRODUCT USED FOR UNKNOWN INDICATION
     Dosage: SUBOXONE FILM; DOSING DETAILS NOT PROVIDED UNKNOWN
  3. SUBUTEX [Suspect]
     Indication: PRODUCT USED FOR UNKNOWN INDICATION
     Dosage: DOSING DETAILS NOT PROVIDED UNKNOWN

REACTIONS (15)
  - Kidney infection [None]
  - Cystitis [None]
  - Abdominal pain [None]
  - Malaise [None]
  - Feeling of body temperature change [None]
  - Cough [None]
  - Rhinorrhoea [None]
  - Flushing [None]
  - Blood pressure increased [None]
  - Nasal congestion [None]
  - Pharyngitis streptococcal [None]
  - Ear congestion [None]
  - Cold sweat [None]
  - Nasal discomfort [None]
  - Substance abuse [None]
